FAERS Safety Report 4428504-6 (Version None)
Quarter: 2004Q3

REPORT INFORMATION
  Report Type: 
  Country: None (occurrence: None)
  Receive Date: 20040816
  Receipt Date: 20040806
  Transmission Date: 20050211
  Serious: Yes (Other)
  Sender: FDA-Public Use
  Company Number: CIP04001374

PATIENT
  Age: 73 Year
  Sex: Female

DRUGS (4)
  1. ACTONEL [Suspect]
     Indication: OSTEOPOROSIS
     Dosage: 35 MG ONCE WEEKLY FOR 2 DOSES, ORAL
     Route: 048
     Dates: start: 20040608, end: 20040615
  2. DETROL - SLOW RELEASE (TOLTERODINE L-TARTRATE) [Concomitant]
  3. ASPIRIN [Concomitant]
  4. TUMS [Concomitant]

REACTIONS (5)
  - DEAFNESS UNILATERAL [None]
  - EOSINOPHIL COUNT DECREASED [None]
  - INNER EAR DISORDER [None]
  - NEUTROPHIL COUNT INCREASED [None]
  - TINNITUS [None]
